FAERS Safety Report 4485177-4 (Version None)
Quarter: 2004Q4

REPORT INFORMATION
  Report Type: 
  Country: None (occurrence: None)
  Receive Date: 20041026
  Receipt Date: 20040219
  Transmission Date: 20050328
  Serious: No
  Sender: FDA-Public Use
  Company Number: US-BRISTOL-MYERS SQUIBB COMPANY-12511671

PATIENT
  Age: 63 Year
  Sex: Female
  Weight: 86 kg

DRUGS (5)
  1. GLUCOPHAGE XR [Suspect]
     Indication: DIABETES MELLITUS
     Route: 048
     Dates: start: 20040218
  2. NEURONTIN [Concomitant]
     Indication: NEUROPATHY
     Dosage: DOSE TAKEN AT BEDTIME.
  3. MOTRIN [Concomitant]
  4. PEPCID [Concomitant]
     Dosage: DOSE TAKEN IN THE MORNING AND EVENING.
  5. AVAPRO [Concomitant]

REACTIONS (2)
  - FEELING JITTERY [None]
  - TREMOR [None]
